FAERS Safety Report 9382339 (Version 3)
Quarter: 2013Q4

REPORT INFORMATION
  Report Type: Report from Study
  Country: GB (occurrence: GB)
  Receive Date: 20130703
  Receipt Date: 20131004
  Transmission Date: 20140711
  Serious: Yes (Death, Hospitalization)
  Sender: FDA-Public Use
  Company Number: GB-GLAXOSMITHKLINE-B0881715C

PATIENT
  Age: 65 Year
  Sex: Female
  Weight: 69.2 kg

DRUGS (8)
  1. OFATUMUMAB [Suspect]
     Indication: CHRONIC LYMPHOCYTIC LEUKAEMIA
     Dosage: 1000MG MONTHLY
     Route: 042
     Dates: start: 20121219
  2. BENDAMUSTINE [Suspect]
     Indication: CHRONIC LYMPHOCYTIC LEUKAEMIA
     Dosage: 250MG MONTHLY
     Route: 042
     Dates: start: 20121219
  3. PARACETAMOL [Concomitant]
     Indication: ANTIPYRESIS
     Dosage: 1000MG MONTHLY
     Route: 048
  4. CHLORPHENIRAMINE [Concomitant]
     Indication: ANTIALLERGIC THERAPY
     Dosage: 10MG MONTHLY
     Route: 042
  5. PREDNISOLONE [Concomitant]
     Indication: STEROID THERAPY
     Dosage: 20MG MONTHLY
     Route: 048
  6. ALLOPURINOL [Concomitant]
     Indication: GOUT
     Route: 048
  7. METOCLOPRAMIDE [Concomitant]
     Indication: VOMITING
     Dosage: 10MG AS REQUIRED
     Route: 048
  8. ACICLOVIR [Concomitant]
     Indication: ANTIVIRAL TREATMENT
     Dosage: 400MG TWICE PER DAY
     Route: 048

REACTIONS (1)
  - Diverticulitis [Fatal]
